FAERS Safety Report 21582909 (Version 3)
Quarter: 2024Q2

REPORT INFORMATION
  Report Type: Report from Study
  Country: DE (occurrence: DE)
  Receive Date: 20221111
  Receipt Date: 20240624
  Transmission Date: 20240716
  Serious: No
  Sender: FDA-Public Use
  Company Number: DE-ROCHE-3131925

PATIENT
  Age: 39 Year
  Sex: Female

DRUGS (3)
  1. OCREVUS [Suspect]
     Active Substance: OCRELIZUMAB
     Indication: Relapsing-remitting multiple sclerosis
     Route: 042
     Dates: start: 20220525
  2. OCREVUS [Suspect]
     Active Substance: OCRELIZUMAB
     Route: 042
  3. ESCITALOPRAM [Concomitant]
     Active Substance: ESCITALOPRAM OXALATE

REACTIONS (8)
  - Fatigue [Recovered/Resolved]
  - Throat irritation [Recovered/Resolved]
  - COVID-19 [Recovered/Resolved]
  - Infection susceptibility increased [Recovered/Resolved]
  - Nasopharyngitis [Recovered/Resolved]
  - Fatigue [Recovered/Resolved]
  - Diarrhoea [Recovered/Resolved]
  - Cough [Not Recovered/Not Resolved]

NARRATIVE: CASE EVENT DATE: 20220525
